FAERS Safety Report 14804522 (Version 1)
Quarter: 2018Q2

REPORT INFORMATION
  Report Type: Spontaneous
  Country: FR (occurrence: FR)
  Receive Date: 20180425
  Receipt Date: 20180425
  Transmission Date: 20180711
  Serious: Yes (Hospitalization)
  Sender: FDA-Public Use
  Company Number: FR-SA-2018SA115974

PATIENT
  Age: 41 Year
  Sex: Male

DRUGS (1)
  1. FABRAZYME [Suspect]
     Active Substance: AGALSIDASE BETA
     Dosage: DOSAGE: 1MG/KG
     Route: 041

REACTIONS (4)
  - Electrocardiogram T wave inversion [Unknown]
  - Left ventricular hypertrophy [Unknown]
  - Bundle branch block [Unknown]
  - Myocardial necrosis marker increased [Unknown]
